FAERS Safety Report 5127656-2 (Version None)
Quarter: 2006Q4

REPORT INFORMATION
  Report Type: 
  Country: None (occurrence: None)
  Receive Date: 20061011
  Receipt Date: 20060927
  Transmission Date: 20070319
  Serious: Yes (Hospitalization)
  Sender: FDA-Public Use
  Company Number: SPVI-2006-01041

PATIENT
  Age: 16 Year
  Sex: Male

DRUGS (1)
  1. PENTASA [Suspect]
     Indication: CROHN'S DISEASE
     Dosage: 500 MG, 3X/DAY:TID, ORAL
     Route: 048
     Dates: start: 20060407, end: 20060506

REACTIONS (4)
  - COUGH [None]
  - DIARRHOEA [None]
  - EOSINOPHILIC PNEUMONIA [None]
  - PYREXIA [None]
